FAERS Safety Report 9174051 (Version 1)
Quarter: 2013Q1

REPORT INFORMATION
  Report Type: Spontaneous
  Country: US (occurrence: None)
  Receive Date: 20130318
  Receipt Date: 20130318
  Transmission Date: 20140127
  Serious: No
  Sender: FDA-Public Use
  Company Number: None

PATIENT
  Age: 12 Year
  Sex: Female
  Weight: 60.78 kg

DRUGS (1)
  1. POLYETHYLENE GLYCOL [Suspect]
     Indication: CONSTIPATION
     Dosage: 17 GRAMS EVERY 3 DAYS UNK
     Dates: start: 20120801, end: 20130314

REACTIONS (5)
  - Haemorrhage [None]
  - Breast discharge [None]
  - Vaginal haemorrhage [None]
  - Rectal haemorrhage [None]
  - Off label use [None]
